FAERS Safety Report 6382458-4 (Version None)
Quarter: 2009Q3

REPORT INFORMATION
  Report Type: 
  Country: None (occurrence: None)
  Receive Date: 20090930
  Receipt Date: 20070529
  Transmission Date: 20100115
  Serious: Yes (Hospitalization, Other)
  Sender: FDA-Public Use
  Company Number: US-ASTRAZENECA-2006UW25940

PATIENT
  Age: 19134 Day
  Sex: Female

DRUGS (43)
  1. SEROQUEL [Suspect]
     Indication: BIPOLAR DISORDER
     Route: 048
     Dates: start: 19990101
  2. SEROQUEL [Suspect]
     Indication: SCHIZOPHRENIA
     Route: 048
     Dates: start: 19990101
  3. SEROQUEL [Suspect]
     Dosage: 20-425 MG
     Route: 048
     Dates: start: 20050907
  4. SEROQUEL [Suspect]
     Dosage: 20-425 MG
     Route: 048
     Dates: start: 20050907
  5. ABILIFY [Suspect]
     Route: 048
     Dates: start: 20040101
  6. HALDOL [Suspect]
     Dates: start: 20010102
  7. NAVANE [Suspect]
  8. RISPERDAL [Suspect]
     Route: 048
     Dates: start: 20050202
  9. THORAZINE [Suspect]
  10. ZYPREXA [Suspect]
     Indication: MENTAL DISORDER
     Dosage: 10-20 MG
     Route: 048
     Dates: start: 20001030
  11. ZYPREXA [Suspect]
     Indication: PSYCHOTIC DISORDER
     Dosage: 10-20 MG
     Route: 048
     Dates: start: 20001030
  12. LITHIUM [Suspect]
  13. PAXIL [Suspect]
     Dates: start: 20040413
  14. LEXAPRO [Suspect]
     Dosage: 10-20 MG
     Route: 048
     Dates: start: 20040101
  15. COGENTIN [Suspect]
     Dates: start: 20011018
  16. DEPAKOTE [Concomitant]
     Indication: MOOD SWINGS
     Route: 048
     Dates: start: 20001030
  17. NPH INSULIN [Concomitant]
     Dosage: 50 UNITS/44 UNITS, 30 UNITS/15 UNITS
     Dates: start: 20001202
  18. HUMULIN 70/30 [Concomitant]
     Dosage: 40 UNITS EVERY MORNING/30 UNITS EVERY EVENING, 70 UNITS
     Route: 058
     Dates: start: 20001030
  19. GLUCOTROL [Concomitant]
     Route: 048
     Dates: start: 20050202
  20. AVANDIA [Concomitant]
     Route: 048
     Dates: start: 20050202
  21. TRILEPTAL [Concomitant]
     Route: 048
     Dates: start: 20040101
  22. TYLENOL W/ CODEINE NO. 3 [Concomitant]
     Indication: PAIN
     Dosage: EVERY 6 HRS
     Dates: start: 20040430
  23. TYLENOL (CAPLET) [Concomitant]
     Indication: PAIN
     Dosage: 650 MG EVERY 4 HRS
     Route: 048
     Dates: start: 20050202
  24. DILANTIN [Concomitant]
     Route: 048
     Dates: start: 20001030
  25. LOPRESSOR [Concomitant]
     Indication: HYPERTENSION
     Dosage: 50-200 MG
     Route: 048
     Dates: start: 20001030
  26. ALBUTEROL [Concomitant]
     Indication: CHRONIC OBSTRUCTIVE PULMONARY DISEASE
     Dosage: 2 PUFFS EVERY 4-6 HRS
     Dates: start: 20040430
  27. ALBUTEROL [Concomitant]
     Indication: ASTHMA
     Dosage: 2 PUFFS EVERY 4-6 HRS
     Dates: start: 20040430
  28. MAVIK [Concomitant]
     Route: 048
     Dates: start: 20050907
  29. LASIX [Concomitant]
     Dosage: 20-40 MG
     Route: 048
     Dates: start: 20050907
  30. SINGULAIR [Concomitant]
     Route: 048
     Dates: start: 20050907
  31. DESYREL [Concomitant]
     Indication: MENTAL DISORDER
     Dates: start: 20010102
  32. CAPOTEN [Concomitant]
     Indication: HYPERTENSION
     Dates: start: 20020118
  33. BENAZEPRIL HYDROCHLORIDE [Concomitant]
     Route: 048
     Dates: start: 20001030
  34. WELLBUTRIN [Concomitant]
     Route: 048
     Dates: start: 20001202
  35. BUSPAR [Concomitant]
     Route: 048
     Dates: start: 20001202
  36. ASPIRIN [Concomitant]
     Dosage: 81-325 MG
     Route: 048
     Dates: start: 20001030
  37. ATIVAN [Concomitant]
     Indication: AGITATION
     Dates: start: 20061214
  38. RESTORIL [Concomitant]
     Indication: INSOMNIA
     Dates: start: 20070221
  39. KLONOPIN [Concomitant]
     Indication: CONVULSION
     Dosage: 1-6 MG
     Route: 048
     Dates: start: 20061214
  40. GLUCOPHAGE [Concomitant]
     Dosage: 500-1500 MG
     Dates: start: 20070314
  41. NITROGLYCERIN [Concomitant]
     Dates: start: 20040413
  42. FLUTICASONE [Concomitant]
     Dosage: 1250 MCG
     Dates: start: 20070321
  43. ADVAIR DISKUS 100/50 [Concomitant]
     Indication: ASTHMA
     Dates: start: 20061214

REACTIONS (19)
  - ASTHENIA [None]
  - BIPOLAR DISORDER [None]
  - BIPOLAR I DISORDER [None]
  - DEPRESSION [None]
  - DIABETES MELLITUS [None]
  - DIABETES MELLITUS INADEQUATE CONTROL [None]
  - HALLUCINATION, AUDITORY [None]
  - HOMICIDAL IDEATION [None]
  - HYPERGLYCAEMIA [None]
  - MAJOR DEPRESSION [None]
  - MOOD SWINGS [None]
  - PSYCHOTIC DISORDER [None]
  - SCHIZOAFFECTIVE DISORDER [None]
  - SCHIZOAFFECTIVE DISORDER BIPOLAR TYPE [None]
  - SCHIZOPHRENIA [None]
  - SCHIZOPHRENIA, PARANOID TYPE [None]
  - SUICIDAL IDEATION [None]
  - SUICIDE ATTEMPT [None]
  - TACHYPHRENIA [None]
